FAERS Safety Report 7130657-6 (Version None)
Quarter: 2010Q4

REPORT INFORMATION
  Report Type: 
  Country: None (occurrence: None)
  Receive Date: 20101201
  Receipt Date: 20101126
  Transmission Date: 20110411
  Serious: Yes (Life-Threatening, Hospitalization, Disabling, Other)
  Sender: FDA-Public Use
  Company Number: GB-PFIZER INC-2007039224

PATIENT
  Age: 38 Year
  Sex: Female
  Weight: 60 kg

DRUGS (19)
  1. CHAMPIX [Suspect]
     Indication: SMOKING CESSATION THERAPY
     Route: 048
     Dates: start: 20070402, end: 20070422
  2. IBUPROFEN [Suspect]
  3. APROVEL [Concomitant]
  4. ACETYLSALICYLIC ACID [Concomitant]
  5. BUMETANIDE [Concomitant]
     Dosage: THREE IN THE MORNING AND TWO AT NIGHT
  6. DOSULEPIN [Concomitant]
  7. FUROSEMIDE [Concomitant]
     Dosage: IN THE MORNING
  8. GABAPENTIN [Concomitant]
  9. ACTRAPID [Concomitant]
     Dosage: AS DIRECTED
  10. KETOCONAZOLE [Concomitant]
     Dosage: 2% AS DIRECTED
  11. LEVOTHYROXINE [Concomitant]
     Dosage: 50 MCG DAILY AND 100 MCG TWO DAILY
  12. RAMIPRIL [Concomitant]
  13. ALL OTHER THERAPEUTIC PRODUCTS [Concomitant]
     Dosage: TWO DOSES
     Route: 055
  14. TRAMADOL HCL [Concomitant]
  15. SERETIDE [Concomitant]
     Dosage: TWO DOSE FORMS TWICE DAILY
  16. INSULIN [Concomitant]
  17. ATORVASTATIN [Concomitant]
  18. SALMETEROL [Concomitant]
  19. FLUTICASONE PROPIONATE [Concomitant]

REACTIONS (9)
  - ALANINE AMINOTRANSFERASE INCREASED [None]
  - BLOOD ALKALINE PHOSPHATASE INCREASED [None]
  - CONDITION AGGRAVATED [None]
  - FATIGUE [None]
  - GAMMA-GLUTAMYLTRANSFERASE INCREASED [None]
  - HEPATIC FUNCTION ABNORMAL [None]
  - INSOMNIA [None]
  - LIVER FUNCTION TEST ABNORMAL [None]
  - OEDEMA [None]
